FAERS Safety Report 7860593-9 (Version None)
Quarter: 2011Q4

REPORT INFORMATION
  Report Type: 
  Country: None (occurrence: None)
  Receive Date: 20111027
  Receipt Date: 20111019
  Transmission Date: 20120403
  Serious: Yes (Other)
  Sender: FDA-Public Use
  Company Number: FR-JNJFOC-20111010449

PATIENT
  Age: 77 Year
  Sex: Male

DRUGS (4)
  1. ABIRATERONE [Suspect]
     Route: 048
  2. ABIRATERONE [Suspect]
     Indication: PROSTATE CANCER
     Route: 048
  3. PREDNISONE [Suspect]
     Indication: PROSTATE CANCER
     Route: 065
  4. HORMONAL TREATMENT NOS [Concomitant]
     Indication: PRODUCT USED FOR UNKNOWN INDICATION

REACTIONS (4)
  - GENERAL PHYSICAL HEALTH DETERIORATION [None]
  - PROSTATIC SPECIFIC ANTIGEN INCREASED [None]
  - OEDEMA [None]
  - ANAEMIA [None]
